FAERS Safety Report 20562214 (Version 2)
Quarter: 2022Q1

REPORT INFORMATION
  Report Type: Spontaneous
  Country: GB (occurrence: GB)
  Receive Date: 20220307
  Receipt Date: 20220329
  Transmission Date: 20220423
  Serious: No
  Sender: FDA-Public Use
  Company Number: None

PATIENT
  Age: 74 Year
  Sex: Male
  Weight: 114 kg

DRUGS (16)
  1. EMPAGLIFLOZIN [Suspect]
     Active Substance: EMPAGLIFLOZIN
     Dates: start: 20220217
  2. EMPAGLIFLOZIN [Suspect]
     Active Substance: EMPAGLIFLOZIN
     Indication: Ill-defined disorder
  3. COCODAMOL [Concomitant]
     Active Substance: ACETAMINOPHEN\CODEINE PHOSPHATE
     Dosage: TAKE 1 OR 2 4 TIMES/DAY AS REQUIRED.
     Dates: start: 20210804
  4. ASPIRIN [Concomitant]
     Active Substance: ASPIRIN
     Dates: start: 20210804
  5. BIMATOPROST [Concomitant]
     Active Substance: BIMATOPROST
     Dosage: ONE DROP ONCE DAILY (INPLACE OF LUMIGAN)
     Dates: start: 20210804
  6. BIMATOPROST [Concomitant]
     Active Substance: BIMATOPROST
     Indication: Ill-defined disorder
  7. FLUOXETINE [Concomitant]
     Active Substance: FLUOXETINE HYDROCHLORIDE
     Dates: start: 20210804
  8. IBUPROFEN [Concomitant]
     Active Substance: IBUPROFEN
     Dosage: APPLY TO THE AFFECTED AREA THREE OR FOUR TIMES ...
     Dates: start: 20200717
  9. IBUPROFEN [Concomitant]
     Active Substance: IBUPROFEN
     Indication: Ill-defined disorder
  10. IVABRADINE [Concomitant]
     Active Substance: IVABRADINE
     Dosage: TAKE ONE TWICE DAILY
     Dates: start: 20210804
  11. IVABRADINE [Concomitant]
     Active Substance: IVABRADINE
     Indication: Ill-defined disorder
  12. LOSARTAN [Concomitant]
     Active Substance: LOSARTAN
     Dates: start: 20210804
  13. METFORMIN [Concomitant]
     Active Substance: METFORMIN HYDROCHLORIDE
     Dosage: WITH BREAKFAST AND WITH EVENING MEAL.
     Dates: start: 20210804
  14. METFORMIN [Concomitant]
     Active Substance: METFORMIN HYDROCHLORIDE
     Indication: Ill-defined disorder
  15. ROSUVASTATIN [Concomitant]
     Active Substance: ROSUVASTATIN
     Dates: start: 20210804
  16. ISOSORBIDE MONONITRATE [Concomitant]
     Active Substance: ISOSORBIDE MONONITRATE
     Indication: Ill-defined disorder
     Dosage: TAKE ONE DAILY
     Dates: start: 20210804

REACTIONS (3)
  - Nausea [Recovering/Resolving]
  - Ketonuria [Recovering/Resolving]
  - Malaise [Unknown]
